FAERS Safety Report 21042689 (Version 20)
Quarter: 2025Q2

REPORT INFORMATION
  Report Type: Report from Study
  Country: US (occurrence: US)
  Receive Date: 20220705
  Receipt Date: 20250630
  Transmission Date: 20250716
  Serious: Yes (Hospitalization, Other)
  Sender: TAKEDA
  Company Number: US-TAKEDA-2022TUS011138

PATIENT
  Age: 52 Year
  Sex: Female
  Weight: 73 kg

DRUGS (8)
  1. TEDUGLUTIDE [Suspect]
     Active Substance: TEDUGLUTIDE
     Indication: Short-bowel syndrome
     Dosage: 3.3 MILLIGRAM, QD
     Dates: start: 20211227
  2. TEDUGLUTIDE [Suspect]
     Active Substance: TEDUGLUTIDE
     Dosage: 3.25 MILLIGRAM, QD
     Dates: end: 20220303
  3. TEDUGLUTIDE [Suspect]
     Active Substance: TEDUGLUTIDE
     Dosage: 0.33 MILLILITER, QOD
  4. TEDUGLUTIDE [Suspect]
     Active Substance: TEDUGLUTIDE
     Dosage: 3.3 MILLIGRAM, QD
  5. TEDUGLUTIDE [Suspect]
     Active Substance: TEDUGLUTIDE
     Dosage: 2.5 MILLIGRAM, QD
  6. TEDUGLUTIDE [Suspect]
     Active Substance: TEDUGLUTIDE
     Dosage: 0.33 MILLILITER, QD
     Dates: start: 202112
  7. ABILIFY [Concomitant]
     Active Substance: ARIPIPRAZOLE
  8. GABAPENTIN [Concomitant]
     Active Substance: GABAPENTIN

REACTIONS (29)
  - Urinary tract infection [Unknown]
  - Kidney infection [Unknown]
  - Dehydration [Unknown]
  - Vascular device infection [Unknown]
  - Loss of consciousness [Unknown]
  - Syncope [Unknown]
  - Sepsis [Unknown]
  - Diarrhoea [Unknown]
  - Peripheral swelling [Unknown]
  - Weight increased [Recovered/Resolved]
  - Haemoglobin decreased [Unknown]
  - Constipation [Unknown]
  - Discomfort [Unknown]
  - Faeces discoloured [Unknown]
  - Blood pressure abnormal [Unknown]
  - Gastrointestinal pain [Unknown]
  - Anaemia [Unknown]
  - Stress [Unknown]
  - Death of relative [Unknown]
  - Gastrointestinal stoma output increased [Unknown]
  - Defaecation urgency [Not Recovered/Not Resolved]
  - Incontinence [Unknown]
  - Supraventricular tachycardia [Unknown]
  - Gastrointestinal sounds abnormal [Unknown]
  - Abdominal pain upper [Unknown]
  - Nausea [Unknown]
  - Abdominal distension [Unknown]
  - Abdominal pain [Unknown]
  - Oedema peripheral [Unknown]

NARRATIVE: CASE EVENT DATE: 20230313
